FAERS Safety Report 6938456-2 (Version None)
Quarter: 2010Q3

REPORT INFORMATION
  Report Type: 
  Country: None (occurrence: None)
  Receive Date: 20100824
  Receipt Date: 20100816
  Transmission Date: 20110219
  Serious: Yes (Other)
  Sender: FDA-Public Use
  Company Number: US-AMGEN-QUU431842

PATIENT
  Sex: Male

DRUGS (2)
  1. NPLATE [Suspect]
     Indication: IDIOPATHIC THROMBOCYTOPENIC PURPURA
     Dates: start: 20100320
  2. IMMU-G [Concomitant]
     Route: 042

REACTIONS (3)
  - BONE MARROW DISORDER [None]
  - MEGAKARYOCYTES INCREASED [None]
  - THROMBOCYTOPENIA [None]
